FAERS Safety Report 4878294-8 (Version None)
Quarter: 2006Q1

REPORT INFORMATION
  Report Type: 
  Country: None (occurrence: None)
  Receive Date: 20060111
  Receipt Date: 20050930
  Transmission Date: 20060701
  Serious: Yes (Hospitalization, Disabling)
  Sender: FDA-Public Use
  Company Number: US-MERCK-0510USA02053

PATIENT
  Age: 58 Year
  Sex: Female
  Weight: 114 kg

DRUGS (10)
  1. VIOXX [Suspect]
     Indication: ARTHRALGIA
     Route: 048
     Dates: start: 20010131, end: 20010227
  2. HYDROCODONE BITARTRATE + ACETAMINOPHEN [Concomitant]
     Route: 065
  3. CALTRATE [Concomitant]
     Route: 048
  4. FLEXERIL [Concomitant]
     Route: 048
  5. MONOPRIL [Concomitant]
     Route: 048
  6. HYDROCHLOROTHIAZIDE [Concomitant]
     Route: 048
  7. MIACALCIN [Concomitant]
     Route: 065
  8. PAXIL [Concomitant]
     Route: 065
  9. COLACE [Concomitant]
     Route: 065
  10. VITAMIN E [Concomitant]
     Route: 048

REACTIONS (4)
  - ANAEMIA [None]
  - CEREBROVASCULAR ACCIDENT [None]
  - DEPRESSION [None]
  - HYPOKALAEMIA [None]
